FAERS Safety Report 10306078 (Version 1)
Quarter: 2014Q3

REPORT INFORMATION
  Report Type: Spontaneous
  Country: RU (occurrence: RU)
  Receive Date: 20140715
  Receipt Date: 20140715
  Transmission Date: 20150326
  Serious: Yes (Other)
  Sender: FDA-Public Use
  Company Number: RU-VIIV HEALTHCARE LIMITED-B1013798A

PATIENT
  Age: 37 Year
  Sex: Female

DRUGS (4)
  1. EPIVIR [Suspect]
     Active Substance: LAMIVUDINE
     Indication: HIV INFECTION
     Route: 065
  2. COMBIVIR [Suspect]
     Active Substance: LAMIVUDINE\ZIDOVUDINE
     Indication: HIV INFECTION
     Route: 065
  3. STOCRIN [Suspect]
     Active Substance: EFAVIRENZ
     Indication: HIV INFECTION
     Route: 065
  4. KALETRA [Suspect]
     Active Substance: LOPINAVIR\RITONAVIR
     Indication: HIV INFECTION
     Route: 065

REACTIONS (6)
  - Drug ineffective [Unknown]
  - Diarrhoea [Unknown]
  - Blood cholesterol increased [Not Recovered/Not Resolved]
  - Pancreatitis [Recovered/Resolved]
  - Abnormal dreams [Not Recovered/Not Resolved]
  - Nausea [Unknown]
